FAERS Safety Report 9381917 (Version 1)
Quarter: 2013Q3

REPORT INFORMATION
  Report Type: Spontaneous
  Country: US (occurrence: US)
  Receive Date: 20130703
  Receipt Date: 20130703
  Transmission Date: 20140515
  Serious: No
  Sender: FDA-Public Use
  Company Number: US-009507513-1306USA007605

PATIENT
  Age: 75 Year
  Sex: Female
  Weight: 68.27 kg

DRUGS (4)
  1. FOSAMAX [Suspect]
     Dosage: UNK
  2. ZETIA [Suspect]
  3. PRAVASTATIN SODIUM [Concomitant]
     Indication: BLOOD CHOLESTEROL INCREASED
     Dosage: UNK
     Route: 048
     Dates: start: 2013, end: 2013
  4. ACTONEL [Concomitant]
     Indication: BONE DISORDER

REACTIONS (7)
  - Gait disturbance [Unknown]
  - Joint swelling [Unknown]
  - Oedema peripheral [Unknown]
  - Flushing [Recovered/Resolved]
  - Fatigue [Recovered/Resolved]
  - Pain in extremity [Recovered/Resolved]
  - Arthralgia [Recovered/Resolved]
